FAERS Safety Report 24056595 (Version 1)
Quarter: 2024Q3

REPORT INFORMATION
  Report Type: Report from Study
  Country: CZ (occurrence: CZ)
  Receive Date: 20240705
  Receipt Date: 20240705
  Transmission Date: 20241017
  Serious: Yes (Hospitalization)
  Sender: ABBVIE
  Company Number: CZ-ABBVIE-5825057

PATIENT
  Age: 89 Year
  Sex: Male

DRUGS (2)
  1. HUMIRA [Suspect]
     Active Substance: ADALIMUMAB
     Indication: Psoriasis
     Route: 058
     Dates: start: 20100524
  2. METHOTREXATE [Concomitant]
     Active Substance: METHOTREXATE
     Indication: Product used for unknown indication
     Route: 065

REACTIONS (9)
  - Respiratory failure [Unknown]
  - Degenerative aortic valve disease [Unknown]
  - Diastolic dysfunction [Unknown]
  - Mitral valve incompetence [Unknown]
  - Cardiac failure [Unknown]
  - Pleural effusion [Unknown]
  - Respiratory failure [Unknown]
  - Dyspnoea [Unknown]
  - Pericardial effusion [Unknown]

NARRATIVE: CASE EVENT DATE: 20240418
